FAERS Safety Report 17703530 (Version 2)
Quarter: 2020Q2

REPORT INFORMATION
  Report Type: Spontaneous
  Country: JP (occurrence: JP)
  Receive Date: 20200424
  Receipt Date: 20200525
  Transmission Date: 20200714
  Serious: Yes (Other)
  Sender: FDA-Public Use
  Company Number: NVSJ2020JP004614

PATIENT

DRUGS (1)
  1. EQUMET [Suspect]
     Active Substance: METFORMIN HYDROCHLORIDE\VILDAGLIPTIN
     Indication: TYPE 2 DIABETES MELLITUS
     Dosage: VILDAGLIPTIN50/METFORMIN HYDROCHLORIDE250MG
     Route: 048

REACTIONS (2)
  - Dementia [Unknown]
  - Wrong technique in product usage process [Unknown]
